FAERS Safety Report 6662228-X (Version None)
Quarter: 2010Q1

REPORT INFORMATION
  Report Type: 
  Country: None (occurrence: None)
  Receive Date: 20100331
  Receipt Date: 20100323
  Transmission Date: 20100710
  Serious: Yes (Hospitalization)
  Sender: FDA-Public Use
  Company Number: GXKR2010CH03497

PATIENT
  Age: 39 Year
  Sex: Female

DRUGS (4)
  1. AMOXICILLIN SODIUM+POTASSIUM CLAVULANATE SANDOZ (NGX) [Suspect]
     Indication: STREPTOCOCCAL SEPSIS
     Dosage: 1 G, BID
     Route: 048
     Dates: start: 20091015, end: 20091015
  2. AUGMENTIN '125' [Suspect]
     Indication: STREPTOCOCCAL SEPSIS
     Dosage: 1.2 G, BID
     Route: 042
     Dates: start: 20091016, end: 20091021
  3. DAFALGAN [Concomitant]
     Route: 048
  4. PRIMPERAN INJ [Concomitant]
     Route: 054

REACTIONS (3)
  - DRUG RASH WITH EOSINOPHILIA AND SYSTEMIC SYMPTOMS [None]
  - EOSINOPHILIA [None]
  - RASH MACULO-PAPULAR [None]
